FAERS Safety Report 13062565 (Version 3)
Quarter: 2017Q1

REPORT INFORMATION
  Report Type: Spontaneous
  Country: US (occurrence: US)
  Receive Date: 20161226
  Receipt Date: 20170118
  Transmission Date: 20170428
  Serious: No
  Sender: FDA-Public Use
  Company Number: US-009507513-1612USA010759

PATIENT
  Sex: Female

DRUGS (1)
  1. DULERA [Suspect]
     Active Substance: FORMOTEROL FUMARATE DIHYDRATE\MOMETASONE FUROATE
     Dosage: 2PUFFS IN THE MORNING AND 2 PUFFS AT NIGHT
     Route: 055
     Dates: start: 20161212

REACTIONS (4)
  - Incorrect dose administered [Unknown]
  - Product quality issue [Unknown]
  - Intentional product misuse [Unknown]
  - No adverse event [Unknown]

NARRATIVE: CASE EVENT DATE: 20161212
